FAERS Safety Report 5862106-X (Version None)
Quarter: 2008Q3

REPORT INFORMATION
  Report Type: 
  Country: None (occurrence: None)
  Receive Date: 20080827
  Receipt Date: 20080827
  Transmission Date: 20090109
  Serious: No
  Sender: FDA-Public Use
  Company Number: None

PATIENT
  Age: 43 Year
  Sex: Male

DRUGS (4)
  1. TRICOR [Suspect]
     Dates: start: 20070701, end: 20070907
  2. METFORMIN HCL [Suspect]
     Dates: start: 20070818, end: 20070904
  3. LANTUS [Concomitant]
  4. NOVALOG INSULIN [Concomitant]

REACTIONS (11)
  - ANOREXIA [None]
  - DIARRHOEA [None]
  - FAECES PALE [None]
  - JAUNDICE [None]
  - LIVER INJURY [None]
  - NAUSEA [None]
  - OEDEMA [None]
  - PRURITUS [None]
  - PYREXIA [None]
  - SMOOTH MUSCLE ANTIBODY POSITIVE [None]
  - URINE COLOUR ABNORMAL [None]
